FAERS Safety Report 25107752 (Version 1)
Quarter: 2025Q1

REPORT INFORMATION
  Report Type: Spontaneous
  Country: US (occurrence: US)
  Receive Date: 20250322
  Receipt Date: 20250322
  Transmission Date: 20250409
  Serious: No
  Sender: SANOFI AVENTIS
  Company Number: US-SA-2025SA078410

PATIENT
  Age: 79 Year
  Sex: Male
  Weight: 74.55 kg

DRUGS (23)
  1. DUPIXENT [Suspect]
     Active Substance: DUPILUMAB
     Dosage: 300 MG, QOW
     Route: 058
  2. VITAMIN B12 [Concomitant]
     Active Substance: CYANOCOBALAMIN
  3. Calcium citrate plus [Concomitant]
  4. RITUXAN [Concomitant]
     Active Substance: RITUXIMAB
  5. FOLIC ACID\IRON [Concomitant]
     Active Substance: FOLIC ACID\IRON
  6. PRAVASTATIN SODIUM [Concomitant]
     Active Substance: PRAVASTATIN SODIUM
  7. ASPIRIN [Concomitant]
     Active Substance: ASPIRIN
  8. FINASTERIDE [Concomitant]
     Active Substance: FINASTERIDE
  9. MENAQUINONE 6 [Concomitant]
     Active Substance: MENAQUINONE 6
  10. Homocysteine formula [Concomitant]
  11. DIETARY SUPPLEMENT\RESVERATROL [Concomitant]
     Active Substance: DIETARY SUPPLEMENT\RESVERATROL
  12. UBIQUINOL [Concomitant]
     Active Substance: UBIQUINOL
  13. PRASTERONE [Concomitant]
     Active Substance: PRASTERONE
  14. VASCEPA [Concomitant]
     Active Substance: ICOSAPENT ETHYL
  15. FOSAMAX [Concomitant]
     Active Substance: ALENDRONATE SODIUM
  16. VITAMIN B COMPLEX [Concomitant]
     Active Substance: CYANOCOBALAMIN\DEXPANTHENOL\NIACINAMIDE\PYRIDOXINE HYDROCHLORIDE\RIBOFLAVIN 5^-PHOSPHATE SODIUM\THIA
  17. VITAMIN D3 [Concomitant]
     Active Substance: CHOLECALCIFEROL
  18. ROSUVASTATIN CALCIUM [Concomitant]
     Active Substance: ROSUVASTATIN CALCIUM
  19. TESTOSTERONE CYPIONATE [Concomitant]
     Active Substance: TESTOSTERONE CYPIONATE
  20. ACYCLOVIR [Concomitant]
     Active Substance: ACYCLOVIR
  21. MONTELUKAST SODIUM [Concomitant]
     Active Substance: MONTELUKAST SODIUM
  22. ARMOUR THYROID [Concomitant]
     Active Substance: THYROID, PORCINE
  23. ALENDRONATE SODIUM [Concomitant]
     Active Substance: ALENDRONATE SODIUM

REACTIONS (4)
  - Pruritus [Unknown]
  - Product dose omission issue [Unknown]
  - Accidental exposure to product [Unknown]
  - Exposure via skin contact [Unknown]

NARRATIVE: CASE EVENT DATE: 20250101
